FAERS Safety Report 6774739-7 (Version None)
Quarter: 2010Q2

REPORT INFORMATION
  Report Type: 
  Country: None (occurrence: None)
  Receive Date: 20100617
  Receipt Date: 20100614
  Transmission Date: 20101027
  Serious: Yes (Other)
  Sender: FDA-Public Use
  Company Number: US-BRISTOL-MYERS SQUIBB COMPANY-15148281

PATIENT
  Sex: Male
  Weight: 54 kg

DRUGS (7)
  1. BUSPAR [Suspect]
     Indication: MENTAL DISORDER
     Route: 065
  2. BUSPAR [Interacting]
     Indication: EMOTIONAL DISORDER
     Route: 065
  3. WELLBUTRIN [Interacting]
     Indication: MENTAL DISORDER
     Route: 065
  4. WELLBUTRIN [Interacting]
     Indication: EMOTIONAL DISORDER
     Route: 065
  5. NAVANE [Interacting]
     Indication: MENTAL DISORDER
     Route: 065
  6. NAVANE [Interacting]
     Indication: EMOTIONAL DISORDER
     Route: 065
  7. CHANTIX [Interacting]
     Indication: TOBACCO USER
     Dosage: CHANTIX FILM COATED TABS
     Route: 048

REACTIONS (6)
  - BRONCHITIS [None]
  - CHRONIC OBSTRUCTIVE PULMONARY DISEASE [None]
  - DELUSION [None]
  - DRUG INTERACTION [None]
  - DYSPNOEA [None]
  - WEIGHT DECREASED [None]
